FAERS Safety Report 23304398 (Version 1)
Quarter: 2023Q4

REPORT INFORMATION
  Report Type: Spontaneous
  Country: US (occurrence: None)
  Receive Date: 20231218
  Receipt Date: 20231218
  Transmission Date: 20240110
  Serious: No
  Sender: FDA-Public Use
  Company Number: 2023A282952

PATIENT
  Age: 858 Month
  Sex: Female
  Weight: 75.8 kg

DRUGS (7)
  1. FASENRA [Suspect]
     Active Substance: BENRALIZUMAB
     Indication: Asthma
     Route: 058
     Dates: start: 20210405
  2. NORVASC [Concomitant]
     Active Substance: AMLODIPINE BESYLATE
  3. ALBUTEROL [Concomitant]
     Active Substance: ALBUTEROL
  4. SODIUM CHLORIDE [Concomitant]
     Active Substance: SODIUM CHLORIDE
  5. ALEVE [Concomitant]
     Active Substance: NAPROXEN SODIUM
  6. PRILOSEC [Concomitant]
     Active Substance: OMEPRAZOLE MAGNESIUM
  7. DIOVAN [Concomitant]
     Active Substance: VALSARTAN

REACTIONS (2)
  - Myalgia [Recovering/Resolving]
  - Dry skin [Recovering/Resolving]

NARRATIVE: CASE EVENT DATE: 20231001
